FAERS Safety Report 7914537-1 (Version None)
Quarter: 2011Q4

REPORT INFORMATION
  Report Type: 
  Country: None (occurrence: None)
  Receive Date: 20111115
  Receipt Date: 20111031
  Transmission Date: 20120403
  Serious: Yes (Other)
  Sender: FDA-Public Use
  Company Number: PHHY2011AU97053

PATIENT
  Age: 63 Year
  Sex: Male

DRUGS (4)
  1. BASILIXIMAB [Suspect]
     Indication: RENAL TRANSPLANT
     Dosage: UNK UKN, UNK
  2. MYCOPHENOLATE MOFETIL [Concomitant]
     Dosage: UNK UKN, UNK
  3. METHYLPREDNISOLONE [Concomitant]
     Dosage: UNK UKN, UNK
  4. TACROLIMUS [Concomitant]
     Dosage: UNK UKN, UNK

REACTIONS (4)
  - RENAL TUBULAR NECROSIS [None]
  - COMPLICATIONS OF TRANSPLANTED KIDNEY [None]
  - URINARY BLADDER RUPTURE [None]
  - RENAL ANEURYSM [None]
